FAERS Safety Report 8304104-2 (Version None)
Quarter: 2012Q2

REPORT INFORMATION
  Report Type: 
  Country: None (occurrence: None)
  Receive Date: 20120423
  Receipt Date: 20120416
  Transmission Date: 20120825
  Serious: No
  Sender: FDA-Public Use
  Company Number: US-BAYER-2012-038782

PATIENT
  Age: 85 Year
  Sex: Male
  Weight: 100 kg

DRUGS (8)
  1. PLAVIX [Concomitant]
  2. GLIPIZIDE [Concomitant]
  3. ALFUZOSIN HCL [Concomitant]
  4. ALEVE (CAPLET) [Suspect]
     Indication: ANALGESIC THERAPY
     Dosage: UNK
     Route: 048
     Dates: start: 20120402
  5. ASPIRIN [Concomitant]
  6. SIMVASTATIN [Concomitant]
  7. AVODART [Concomitant]
  8. MULTI-VITAMINS [Concomitant]

REACTIONS (2)
  - NO ADVERSE EVENT [None]
  - PAIN [None]
